FAERS Safety Report 8366845-0 (Version None)
Quarter: 2012Q2

REPORT INFORMATION
  Report Type: 
  Country: None (occurrence: None)
  Receive Date: 20120517
  Receipt Date: 20120510
  Transmission Date: 20120825
  Serious: Yes (Death, Disabling)
  Sender: FDA-Public Use
  Company Number: JP-ROCHE-1013079

PATIENT
  Sex: Female

DRUGS (16)
  1. AZATHIOPRINE [Suspect]
     Indication: RHEUMATOID ARTHRITIS
     Route: 048
     Dates: start: 20050607
  2. ISONIAZID [Concomitant]
     Indication: ANTIBIOTIC PROPHYLAXIS
     Route: 048
     Dates: start: 20050607
  3. AZATHIOPRINE [Suspect]
     Route: 048
     Dates: end: 20110310
  4. VITAMIN B12 [Concomitant]
     Route: 048
     Dates: start: 20090324
  5. COTRIM [Concomitant]
     Route: 048
  6. PREDNISOLONE [Concomitant]
     Indication: RHEUMATOID ARTHRITIS
     Route: 048
     Dates: start: 20080701, end: 20090716
  7. LANSOPRAZOLE [Concomitant]
     Indication: PROPHYLAXIS
     Route: 048
     Dates: start: 20030109
  8. ACTEMRA [Suspect]
     Indication: RHEUMATOID ARTHRITIS
     Route: 041
     Dates: start: 20081023, end: 20110407
  9. ACTEMRA [Suspect]
     Route: 041
     Dates: start: 20110519, end: 20110715
  10. BIOFERMIN (LACTOBACTERIA/GLYCOBACTERIA) [Concomitant]
     Route: 048
     Dates: start: 20061208
  11. ACTEMRA [Suspect]
     Route: 041
     Dates: start: 20110829, end: 20110829
  12. ALENDRONATE SODIUM [Concomitant]
     Indication: PROPHYLAXIS
     Route: 048
     Dates: start: 20061208, end: 20110407
  13. MEXITIL [Concomitant]
     Route: 048
     Dates: start: 20080409, end: 20090716
  14. ACTEMRA [Suspect]
     Route: 041
     Dates: start: 20111019
  15. MOBIC [Concomitant]
     Indication: RHEUMATOID ARTHRITIS
     Route: 048
     Dates: start: 20020806
  16. PREDNISOLONE [Concomitant]
     Route: 048
     Dates: start: 20090717, end: 20110310

REACTIONS (1)
  - LIP AND/OR ORAL CAVITY CANCER [None]
